FAERS Safety Report 13550644 (Version 3)
Quarter: 2017Q3

REPORT INFORMATION
  Report Type: Spontaneous
  Country: US (occurrence: US)
  Receive Date: 20170516
  Receipt Date: 20170731
  Transmission Date: 20171127
  Serious: Yes (Hospitalization, Other)
  Sender: FDA-Public Use
  Company Number: US-SMITH AND NEPHEW, INC-2017SMT00305

PATIENT
  Age: 46 Year
  Sex: Female
  Weight: 63.49 kg

DRUGS (8)
  1. REGRANEX [Suspect]
     Active Substance: BECAPLERMIN
     Indication: DIABETIC ULCER
     Dosage: UNK, AS DIRECTED 12 HOURS ON AND 12 HOURS OFF
     Route: 061
     Dates: start: 20170407, end: 20170503
  2. UNSPECIFIED INSULIN PUMP [Concomitant]
  3. SILVADENE [Suspect]
     Active Substance: SILVER SULFADIAZINE
     Indication: DIABETIC ULCER
     Dosage: UNK, AS NEEDED
     Route: 061
  4. REGRANEX [Suspect]
     Active Substance: BECAPLERMIN
     Dosage: UNK, 1X/DAY FOR 12 HOURS ON AND 12 HOURS OFF
     Route: 061
     Dates: start: 20170504
  5. PLAVIX [Concomitant]
     Active Substance: CLOPIDOGREL BISULFATE
  6. ZEMPLAR [Concomitant]
     Active Substance: PARICALCITOL
     Dosage: 2 ?G, 1X/DAY
     Route: 048
  7. REGRANEX [Suspect]
     Active Substance: BECAPLERMIN
     Dosage: UNK, 1X/DAY ON FOR 24 HOURS
     Route: 061
     Dates: start: 20170503, end: 20170504
  8. AMLODIPINE [Concomitant]
     Active Substance: AMLODIPINE BESYLATE
     Dosage: 10 MG, 1X/DAY
     Route: 048

REACTIONS (3)
  - Peripheral artery occlusion [Unknown]
  - Peripheral arterial occlusive disease [Unknown]
  - Inappropriate schedule of drug administration [Recovered/Resolved]

NARRATIVE: CASE EVENT DATE: 20170503
